FAERS Safety Report 9157570 (Version 1)
Quarter: 2020Q3

REPORT INFORMATION
  Report Type: Spontaneous
  Country: NL (occurrence: None)
  Receive Date: 20130219
  Receipt Date: 20130219
  Transmission Date: 20201104
  Serious: Yes (Hospitalization)
  Sender: FDA-Public Use
  Company Number: 2013AP002249

PATIENT
  Age: 62 Year
  Sex: Male

DRUGS (3)
  1. CEDIRANIB. [Suspect]
     Active Substance: CEDIRANIB
     Indication: METASTATIC RENAL CELL CARCINOMA
  2. ENALAPRIL [Concomitant]
     Active Substance: ENALAPRIL
  3. PRAVASTATIN. [Suspect]
     Active Substance: PRAVASTATIN
     Indication: HYPERCHOLESTEROLAEMIA

REACTIONS (11)
  - Hypercalcaemia [None]
  - Malaise [None]
  - Decreased appetite [None]
  - Acute kidney injury [None]
  - Tubulointerstitial nephritis [None]
  - Focal segmental glomerulosclerosis [None]
  - Diarrhoea [None]
  - Oedema [None]
  - Apathy [None]
  - Nephrotic syndrome [None]
  - Hypertension [None]
